FAERS Safety Report 6148166-X (Version None)
Quarter: 2009Q2

REPORT INFORMATION
  Report Type: 
  Country: None (occurrence: None)
  Receive Date: 20090408
  Receipt Date: 20090403
  Transmission Date: 20091009
  Serious: Yes (Life-Threatening, Hospitalization, Other)
  Sender: FDA-Public Use
  Company Number: PHHY2009JP02473

PATIENT
  Sex: Male
  Weight: 70 kg

DRUGS (8)
  1. NEORAL [Suspect]
     Indication: STEM CELL TRANSPLANT
     Dosage: 60 MG, BID
     Route: 048
     Dates: start: 20050821, end: 20060131
  2. NEORAL [Suspect]
     Indication: PROPHYLAXIS AGAINST GRAFT VERSUS HOST DISEASE
  3. SANDIMMUNE [Suspect]
     Indication: STEM CELL TRANSPLANT
     Dosage: 60 - 270 MG/DAY
     Route: 042
     Dates: start: 20050530, end: 20050820
  4. PREDONINE [Suspect]
     Indication: STEM CELL TRANSPLANT
     Dosage: 70 MG/DAY
     Route: 048
     Dates: start: 20050703, end: 20060131
  5. METHOTREXATE [Suspect]
     Indication: PROPHYLAXIS AGAINST GRAFT VERSUS HOST DISEASE
  6. CYCLOPHOSPHAMIDE [Suspect]
  7. VP-16 [Suspect]
  8. IRRADIATION [Concomitant]
     Dosage: 12 GY

REACTIONS (7)
  - ACUTE GRAFT VERSUS HOST DISEASE [None]
  - CYSTITIS HAEMORRHAGIC [None]
  - CYTOMEGALOVIRUS INFECTION [None]
  - EPSTEIN-BARR VIRUS ASSOCIATED LYMPHOPROLIFERATIVE DISORDER [None]
  - PERIPHERAL T-CELL LYMPHOMA UNSPECIFIED [None]
  - SPLENECTOMY [None]
  - SPLENIC NEOPLASM MALIGNANCY UNSPECIFIED [None]
